FAERS Safety Report 23638765 (Version 1)
Quarter: 2024Q1

REPORT INFORMATION
  Report Type: Other
  Country: US (occurrence: None)
  Receive Date: 20240315
  Receipt Date: 20240315
  Transmission Date: 20240410
  Serious: Yes (Hospitalization)
  Sender: FDA-Public Use
  Company Number: US-ROCHE-3523850

PATIENT
  Age: 60 Year
  Sex: Female
  Weight: 57.204 kg

DRUGS (4)
  1. OCREVUS [Suspect]
     Active Substance: OCRELIZUMAB
     Indication: Relapsing-remitting multiple sclerosis
     Dosage: THEN 600 MG EVERY 6 MONTH
     Route: 042
     Dates: start: 2023
  2. AMPYRA [Concomitant]
     Active Substance: DALFAMPRIDINE
  3. GABAPENTIN [Concomitant]
     Active Substance: GABAPENTIN
  4. BACLOFEN [Concomitant]
     Active Substance: BACLOFEN

REACTIONS (10)
  - Pneumonia [Not Recovered/Not Resolved]
  - Lung abscess [Not Recovered/Not Resolved]
  - Cough [Recovered/Resolved]
  - Night sweats [Unknown]
  - Haemoglobin decreased [Recovered/Resolved]
  - White blood cell count increased [Unknown]
  - Memory impairment [Unknown]
  - Pain [Not Recovered/Not Resolved]
  - Nasopharyngitis [Unknown]
  - Gait inability [Unknown]

NARRATIVE: CASE EVENT DATE: 20230201
